FAERS Safety Report 8154373-7 (Version None)
Quarter: 2012Q1

REPORT INFORMATION
  Report Type: 
  Country: None (occurrence: None)
  Receive Date: 20120103
  Receipt Date: 20111027
  Transmission Date: 20120608
  Serious: No
  Sender: FDA-Public Use
  Company Number: AE-2011-002792

PATIENT
  Age: 39 Year
  Sex: Male
  Weight: 92.5338 kg

DRUGS (3)
  1. PEGASYS [Concomitant]
  2. COPEGUS [Concomitant]
  3. INCIVEK [Suspect]
     Dosage: 2250 MG (750 MG, 1 IN 8 HR), ORAL
     Route: 048
     Dates: start: 20110915, end: 20111020

REACTIONS (1)
  - FURUNCLE [None]
